FAERS Safety Report 10785976 (Version 4)
Quarter: 2015Q2

REPORT INFORMATION
  Report Type: Spontaneous
  Country: IT (occurrence: IT)
  Receive Date: 20150211
  Receipt Date: 20150421
  Transmission Date: 20150821
  Serious: Yes (Other)
  Sender: FDA-Public Use
  Company Number: IT-JNJFOC-20150119966

PATIENT
  Age: 74 Year
  Sex: Female

DRUGS (16)
  1. CIPRALEX [Suspect]
     Active Substance: ESCITALOPRAM OXALATE
     Indication: DEPRESSION
     Route: 048
  2. CIPRALEX [Suspect]
     Active Substance: ESCITALOPRAM OXALATE
     Indication: DEPRESSION
     Route: 048
  3. SEQUACOR [Concomitant]
     Active Substance: BISOPROLOL
     Indication: HYPERTENSION
     Route: 048
  4. ATORVASTATIN [Concomitant]
     Active Substance: ATORVASTATIN
     Indication: HYPERCHOLESTEROLAEMIA
     Route: 048
  5. SERENASE [Suspect]
     Active Substance: HALOPERIDOL
     Indication: PERSONALITY DISORDER
     Route: 048
  6. SERENASE [Suspect]
     Active Substance: HALOPERIDOL
     Indication: PERSONALITY DISORDER
     Route: 048
     Dates: start: 20150109, end: 20150112
  7. TAVOR [Suspect]
     Active Substance: LORAZEPAM
     Indication: DEPRESSION
     Route: 048
  8. CARDIOASPIRIN [Concomitant]
     Active Substance: ASPIRIN
     Indication: THROMBOSIS PROPHYLAXIS
     Route: 048
  9. CITICOLIN [Concomitant]
     Indication: TREMOR
  10. NOOTROPIL [Concomitant]
     Active Substance: PIRACETAM
     Indication: MYOCLONUS
  11. AKINETON [Concomitant]
     Active Substance: BIPERIDEN HYDROCHLORIDE
     Indication: PRODUCT USED FOR UNKNOWN INDICATION
     Route: 065
  12. PANTOPAN [Concomitant]
     Active Substance: PANTOPRAZOLE SODIUM
     Indication: GASTROINTESTINAL INJURY
     Route: 048
  13. SERENASE [Suspect]
     Active Substance: HALOPERIDOL
     Indication: PERSONALITY DISORDER
     Route: 048
     Dates: start: 20150119
  14. TAVOR [Suspect]
     Active Substance: LORAZEPAM
     Indication: DEPRESSION
     Route: 048
  15. TRIATEC [Concomitant]
     Active Substance: RAMIPRIL
     Indication: HYPERTENSION
     Route: 048
  16. NOOTROPIL [Concomitant]
     Active Substance: PIRACETAM
     Indication: VASCULAR COGNITIVE IMPAIRMENT

REACTIONS (4)
  - Muscle rigidity [Recovering/Resolving]
  - Sopor [Recovering/Resolving]
  - Drug abuse [Unknown]
  - Overdose [Recovering/Resolving]

NARRATIVE: CASE EVENT DATE: 20150112
